FAERS Safety Report 17528420 (Version 5)
Quarter: 2020Q2

REPORT INFORMATION
  Report Type: Spontaneous
  Country: EC (occurrence: EC)
  Receive Date: 20200312
  Receipt Date: 20200427
  Transmission Date: 20200713
  Serious: Yes (Death)
  Sender: FDA-Public Use
  Company Number: EC-B.I. PHARMACEUTICALS,INC./RIDGEFIELD-2020-BI-013869

PATIENT
  Age: 51 Year
  Sex: Female

DRUGS (7)
  1. NORADRENALINE [NOREPINEPHRINE] [Concomitant]
     Active Substance: NOREPINEPHRINE
     Indication: PRODUCT USED FOR UNKNOWN INDICATION
     Route: 065
     Dates: end: 20200303
  2. FUROSEMIDE. [Concomitant]
     Active Substance: FUROSEMIDE
     Indication: PRODUCT USED FOR UNKNOWN INDICATION
     Route: 042
     Dates: start: 20200221, end: 20200222
  3. DOBUTAMINE [Concomitant]
     Active Substance: DOBUTAMINE HYDROCHLORIDE
     Indication: PRODUCT USED FOR UNKNOWN INDICATION
     Route: 065
     Dates: end: 20200303
  4. JARDIANCE [Suspect]
     Active Substance: EMPAGLIFLOZIN
     Indication: CARDIAC FAILURE ACUTE
     Route: 048
     Dates: start: 20200302, end: 20200306
  5. FUROSEMIDE. [Concomitant]
     Active Substance: FUROSEMIDE
     Route: 042
     Dates: start: 20200223, end: 20200301
  6. FUROSEMIDE. [Concomitant]
     Active Substance: FUROSEMIDE
     Route: 042
     Dates: start: 20200302
  7. COVERSYL [PERINDOPRIL ARGININE] [Concomitant]
     Active Substance: PERINDOPRIL ARGININE
     Indication: PRODUCT USED FOR UNKNOWN INDICATION
     Route: 065

REACTIONS (5)
  - Atrial fibrillation [Fatal]
  - Electrolyte imbalance [Fatal]
  - Off label use [Fatal]
  - Ventricular arrhythmia [Fatal]
  - Ejection fraction abnormal [Not Recovered/Not Resolved]

NARRATIVE: CASE EVENT DATE: 20200302
